FAERS Safety Report 21470292 (Version 1)
Quarter: 2022Q4

REPORT INFORMATION
  Report Type: Other
  Country: DE (occurrence: DE)
  Receive Date: 20221018
  Receipt Date: 20221018
  Transmission Date: 20230112
  Serious: Yes (Other)
  Sender: FDA-Public Use
  Company Number: None

PATIENT

DRUGS (3)
  1. RIZATRIPTAN BENZOATE [Interacting]
     Active Substance: RIZATRIPTAN BENZOATE
     Indication: Product used for unknown indication
     Dosage: UNK
     Route: 065
  2. AIMOVIG [Interacting]
     Active Substance: ERENUMAB-AOOE
     Indication: Product used for unknown indication
     Dosage: UNK
     Route: 065
  3. NAPROXEN [Interacting]
     Active Substance: NAPROXEN
     Indication: Product used for unknown indication
     Dosage: UNK
     Route: 065

REACTIONS (6)
  - Loss of consciousness [Recovered/Resolved]
  - Constipation [Recovered/Resolved]
  - Chills [Recovered/Resolved]
  - Drug interaction [Unknown]
  - Cold sweat [Recovered/Resolved]
  - Abdominal pain [Recovered/Resolved]
